FAERS Safety Report 8092599-1 (Version None)
Quarter: 2012Q1

REPORT INFORMATION
  Report Type: 
  Country: None (occurrence: None)
  Receive Date: 20120128
  Receipt Date: 20110723
  Transmission Date: 20120608
  Serious: No
  Sender: FDA-Public Use
  Company Number: US-ABBOTT-11P-163-0841363-00

PATIENT
  Age: 64 Year
  Sex: Female

DRUGS (8)
  1. HUMIRA [Suspect]
     Indication: PSORIASIS
     Dates: start: 20110401
  2. ASPIRIN [Concomitant]
     Indication: PROPHYLAXIS
  3. DOVONEX [Concomitant]
     Indication: PSORIASIS
  4. CLOBETASOL PROPIONATE [Concomitant]
     Indication: PSORIASIS
     Route: 061
  5. FLONASE [Concomitant]
     Indication: HYPERSENSITIVITY
     Dosage: TWO SPRAYS EACH NOSTRIL DAILY
     Route: 045
  6. RANTIDINE [Concomitant]
     Indication: DYSPEPSIA
  7. PRAVASTATIN [Concomitant]
     Indication: BLOOD CHOLESTEROL INCREASED
  8. LEXAPRO [Concomitant]
     Indication: DEPRESSION

REACTIONS (1)
  - INJECTION SITE PAIN [None]
